FAERS Safety Report 4479279-6 (Version None)
Quarter: 2004Q4

REPORT INFORMATION
  Report Type: 
  Country: None (occurrence: None)
  Receive Date: 20041019
  Receipt Date: 20041019
  Transmission Date: 20050328
  Serious: Yes (Disabling, Other)
  Sender: FDA-Public Use
  Company Number: None

PATIENT
  Age: 67 Year
  Sex: Male
  Weight: 79.3795 kg

DRUGS (5)
  1. VIOXX [Suspect]
     Indication: BACK PAIN
     Dosage: BACKPAIN
     Dates: start: 20030101, end: 20040101
  2. MELOXICAM [Suspect]
     Dates: start: 20040101, end: 20040101
  3. IBUPROFEN [Concomitant]
  4. ZOCOR [Concomitant]
  5. FELODIPINE [Concomitant]

REACTIONS (1)
  - VASCULITIS [None]
